FAERS Safety Report 7995165 (Version 11)
Quarter: 2013Q3

REPORT INFORMATION
  Report Type: Spontaneous
  Country: US (occurrence: US)
  Receive Date: 20110617
  Receipt Date: 20130912
  Transmission Date: 20140515
  Serious: Yes (Other)
  Sender: FDA-Public Use
  Company Number: US-BIOGENIDEC-2011BI020541

PATIENT
  Age: 51 Year
  Sex: Female

DRUGS (9)
  1. TYSABRI [Suspect]
     Indication: MULTIPLE SCLEROSIS
     Route: 042
     Dates: start: 20071113, end: 20120718
  2. TYSABRI [Suspect]
     Indication: MULTIPLE SCLEROSIS
     Route: 042
     Dates: start: 20130103, end: 20130814
  3. DETROL LA [Concomitant]
  4. EFFEXOR [Concomitant]
  5. MULTIVITAMIN [Concomitant]
  6. CALCIUM WITH D [Concomitant]
  7. B COMPLEX [Concomitant]
  8. IRON [Concomitant]
  9. VITAMIN D [Concomitant]

REACTIONS (7)
  - Neoplasm malignant [Unknown]
  - Multiple sclerosis relapse [Recovered/Resolved]
  - Uhthoff^s phenomenon [Recovered/Resolved]
  - Endometrial hyperplasia [Unknown]
  - Cervix carcinoma stage II [Not Recovered/Not Resolved]
  - Vaginal cancer [Recovered/Resolved]
  - Precancerous skin lesion [Recovered/Resolved]
